FAERS Safety Report 7361365-4 (Version None)
Quarter: 2011Q1

REPORT INFORMATION
  Report Type: 
  Country: None (occurrence: None)
  Receive Date: 20110318
  Receipt Date: 20110309
  Transmission Date: 20110831
  Serious: Yes (Other)
  Sender: FDA-Public Use
  Company Number: B0706858A

PATIENT
  Age: 78 Year
  Sex: Male

DRUGS (3)
  1. TILUR [Suspect]
     Route: 048
     Dates: start: 20031206, end: 20031208
  2. AUGMENTIN '125' [Suspect]
     Route: 048
     Dates: start: 20031110, end: 20031124
  3. CIPROXIN [Suspect]
     Route: 048
     Dates: start: 20031206, end: 20031208

REACTIONS (2)
  - HYPERBILIRUBINAEMIA [None]
  - HEPATIC ENZYME INCREASED [None]
